FAERS Safety Report 10753770 (Version 1)
Quarter: 2015Q1

REPORT INFORMATION
  Report Type: Spontaneous
  Country: US (occurrence: None)
  Receive Date: 20150129
  Receipt Date: 20150129
  Transmission Date: 20150721
  Serious: No
  Sender: FDA-Public Use
  Company Number: None

PATIENT
  Age: 55 Year
  Sex: Female
  Weight: 61.69 kg

DRUGS (7)
  1. DULOXETINE NCL DR 30 MG CAP [Suspect]
     Active Substance: DULOXETINE
     Indication: PAIN
     Dosage: BY MOUTH
     Route: 048
     Dates: start: 20140403, end: 20140427
  2. CYMBALTA [Concomitant]
     Active Substance: DULOXETINE HYDROCHLORIDE
  3. ADVIL [Concomitant]
     Active Substance: IBUPROFEN
  4. FLUTICASONE PROPIONATE. [Concomitant]
     Active Substance: FLUTICASONE PROPIONATE
  5. VITAMIN D [Concomitant]
     Active Substance: CHOLECALCIFEROL
  6. DULOXETINE NCL DR 30 MG CAP [Suspect]
     Active Substance: DULOXETINE
     Indication: DEPRESSION
     Dosage: BY MOUTH
     Route: 048
     Dates: start: 20140403, end: 20140427
  7. DULOXETINE NCL DR 30 MG CAP [Suspect]
     Active Substance: DULOXETINE
     Indication: PAIN IN EXTREMITY
     Dosage: BY MOUTH
     Route: 048
     Dates: start: 20140403, end: 20140427

REACTIONS (4)
  - Insomnia [None]
  - Initial insomnia [None]
  - Norepinephrine increased [None]
  - Hyperhidrosis [None]

NARRATIVE: CASE EVENT DATE: 20140403
